FAERS Safety Report 5146609-1 (Version None)
Quarter: 2006Q4

REPORT INFORMATION
  Report Type: 
  Country: None (occurrence: None)
  Receive Date: 20060911
  Receipt Date: 20060815
  Transmission Date: 20070319
  Serious: No
  Sender: FDA-Public Use
  Company Number: IND-AE-06-SAN-033

PATIENT
  Age: 67 Year
  Sex: Male

DRUGS (3)
  1. SANCTURA [Suspect]
     Indication: HYPERTONIC BLADDER
     Dosage: 20 MG -QD- ORAL
     Route: 048
     Dates: start: 20060812
  2. CRESTOR [Concomitant]
  3. PRILOSEC [Concomitant]

REACTIONS (1)
  - DRY MOUTH [None]
